FAERS Safety Report 5554947-3 (Version None)
Quarter: 2007Q4

REPORT INFORMATION
  Report Type: 
  Country: None (occurrence: None)
  Receive Date: 20071213
  Receipt Date: 20071203
  Transmission Date: 20080405
  Serious: Yes (Hospitalization, Other)
  Sender: FDA-Public Use
  Company Number: CN-ASTRAZENECA-2007AP07676

PATIENT
  Age: 78 Year
  Sex: Male

DRUGS (2)
  1. SEROQUEL [Suspect]
     Indication: SENILE DEMENTIA
     Route: 048
     Dates: start: 20071010, end: 20071114
  2. SEROQUEL [Suspect]
     Route: 048
     Dates: start: 20071114, end: 20071116

REACTIONS (1)
  - WHITE BLOOD CELL COUNT DECREASED [None]
